FAERS Safety Report 6772073-2 (Version None)
Quarter: 2010Q2

REPORT INFORMATION
  Report Type: 
  Country: None (occurrence: None)
  Receive Date: 20100616
  Receipt Date: 20100608
  Transmission Date: 20101027
  Serious: Yes (Hospitalization)
  Sender: FDA-Public Use
  Company Number: A0864651A

PATIENT
  Age: 17 Year
  Sex: Male
  Weight: 56.6 kg

DRUGS (5)
  1. NELARABINE [Suspect]
     Dates: start: 20090920
  2. VINCRISTINE [Suspect]
     Dosage: 1.5MGM2 CYCLIC
     Route: 042
     Dates: start: 20090920
  3. METHOTREXATE [Suspect]
     Route: 042
     Dates: start: 20090920
  4. PEG-ASPARAGINASE [Suspect]
     Route: 030
  5. METHOTREXATE [Suspect]
     Route: 037
     Dates: start: 20090920

REACTIONS (2)
  - DECREASED APPETITE [None]
  - WEIGHT DECREASED [None]
